FAERS Safety Report 8159078-4 (Version None)
Quarter: 2012Q1

REPORT INFORMATION
  Report Type: 
  Country: None (occurrence: None)
  Receive Date: 20120223
  Receipt Date: 20120221
  Transmission Date: 20120608
  Serious: Yes (Hospitalization, Other)
  Sender: FDA-Public Use
  Company Number: US-PFIZER INC-2012046956

PATIENT
  Sex: Male

DRUGS (1)
  1. LYRICA [Suspect]
     Indication: VENOUS INSUFFICIENCY
     Dosage: UNK

REACTIONS (3)
  - HYPERKALAEMIA [None]
  - BLOOD GLUCOSE DECREASED [None]
  - HYPOTENSION [None]
